FAERS Safety Report 22314278 (Version 1)
Quarter: 2023Q2

REPORT INFORMATION
  Report Type: Spontaneous
  Country: FR (occurrence: FR)
  Receive Date: 20230512
  Receipt Date: 20230512
  Transmission Date: 20230722
  Serious: Yes (Other)
  Sender: FDA-Public Use
  Company Number: FR-EMA-DD-20230505-7207890-182641

PATIENT

DRUGS (3)
  1. IBUPROFEN [Suspect]
     Active Substance: IBUPROFEN
     Indication: Product used for unknown indication
     Dosage: UNK
  2. DIPHENHYDRAMINE\HYDROCORTISONE\LIDOCAINE [Suspect]
     Active Substance: DIPHENHYDRAMINE\HYDROCORTISONE\LIDOCAINE
     Indication: Product used for unknown indication
     Dosage: UNK
  3. CISPLATIN [Suspect]
     Active Substance: CISPLATIN
     Indication: Headache
     Dosage: 700 MG, QD
     Route: 030
     Dates: start: 20150205, end: 20150305

REACTIONS (4)
  - Nausea [Recovered/Resolved]
  - Headache [Recovered/Resolved]
  - Rash [Recovered/Resolved]
  - Palpitations [Recovered/Resolved]

NARRATIVE: CASE EVENT DATE: 20150505
